FAERS Safety Report 7307481-4 (Version None)
Quarter: 2011Q1

REPORT INFORMATION
  Report Type: 
  Country: None (occurrence: None)
  Receive Date: 20110211
  Receipt Date: 20110201
  Transmission Date: 20110831
  Serious: Yes (Other)
  Sender: FDA-Public Use
  Company Number: AXC-2011-000071

PATIENT
  Sex: Male

DRUGS (1)
  1. URSODEOXYCHOLIC ACID(URSODEOXYCHOLIC ACID) UNKNOWN [Suspect]
     Indication: DRUG EXPOSURE DURING PREGNANCY
     Dosage: INTRA-UTERINE
     Route: 015

REACTIONS (8)
  - PREMATURE BABY [None]
  - MATERNAL DRUGS AFFECTING FOETUS [None]
  - HYPOTONIA NEONATAL [None]
  - MECONIUM IN AMNIOTIC FLUID [None]
  - NEONATAL RESPIRATORY DISTRESS SYNDROME [None]
  - APNOEA [None]
  - FOETAL HEART RATE DECELERATION [None]
  - CAESAREAN SECTION [None]
